FAERS Safety Report 8341732-2 (Version None)
Quarter: 2012Q2

REPORT INFORMATION
  Report Type: 
  Country: None (occurrence: None)
  Receive Date: 20120503
  Receipt Date: 20120501
  Transmission Date: 20120825
  Serious: Yes (Other)
  Sender: FDA-Public Use
  Company Number: ADR-2012-00413

PATIENT
  Sex: Male

DRUGS (2)
  1. LIORESAL [Suspect]
     Indication: CEREBRAL PALSY
     Dosage: 359.8 MCG/DAY
  2. LIORESAL [Suspect]
     Indication: MUSCLE SPASTICITY
     Dosage: 359.8 MCG/DAY

REACTIONS (4)
  - DEVICE RELATED INFECTION [None]
  - OSTEOMYELITIS [None]
  - BACTERIAL TEST POSITIVE [None]
  - DEVICE BATTERY ISSUE [None]
